FAERS Safety Report 9648369 (Version 1)
Quarter: 2013Q4

REPORT INFORMATION
  Report Type: Spontaneous
  Country: US (occurrence: None)
  Receive Date: 20131024
  Receipt Date: 20131024
  Transmission Date: 20140711
  Serious: Yes (Other)
  Sender: FDA-Public Use
  Company Number: 2013-US-002129

PATIENT
  Age: 56 Year
  Sex: Female

DRUGS (13)
  1. XYREM [Suspect]
     Indication: NARCOLEPSY
     Route: 048
     Dates: start: 20130810, end: 201308
  2. PROVIGIL (MODAFINIL) [Concomitant]
  3. VICTOZA (LIRAGLUTIDE) [Concomitant]
  4. METFORMIN ER (METFORMIN HYDROCHLORIDE) [Concomitant]
  5. VALTREX (VALACICLOVIR HYDROCHLORIDE) [Concomitant]
  6. TOPROL (METOPROLOL SUCCINATE) [Concomitant]
  7. SINGULAIR [Concomitant]
  8. ZOCOR (SIMVASTATIN) [Concomitant]
  9. ATACAND (CANDESARTAN CILEXETIL) [Concomitant]
  10. L-THYROXINE (LEVOTHYROXINE SODIUM) [Concomitant]
  11. PANTOPRAZOLE (PANTOPRAZOLE SODIUM SESQUIHYDRATE) [Concomitant]
  12. AMARYL (GLIMEPIRIDE) [Concomitant]
  13. ASPIRIN (ACETYSALICYCLIC ACID) [Concomitant]

REACTIONS (12)
  - Blindness [None]
  - Swollen tongue [None]
  - Hypoaesthesia oral [None]
  - Vomiting [None]
  - Viral infection [None]
  - Red blood cell count increased [None]
  - Mydriasis [None]
  - Feeling drunk [None]
  - Diarrhoea [None]
  - Headache [None]
  - Nausea [None]
  - Hyperhidrosis [None]
